FAERS Safety Report 15650144 (Version 1)
Quarter: 2018Q4

REPORT INFORMATION
  Report Type: Report from Study
  Country: US (occurrence: US)
  Receive Date: 20181123
  Receipt Date: 20181123
  Transmission Date: 20190205
  Serious: Yes (Death, Hospitalization, Other)
  Sender: FDA-Public Use
  Company Number: US-BAUSCH-BL-2018-032582

PATIENT
  Age: 54 Year
  Sex: Male

DRUGS (3)
  1. XIFAXAN [Suspect]
     Active Substance: RIFAXIMIN
     Indication: AMMONIA INCREASED
     Route: 048
     Dates: start: 201607
  2. XIFAXAN [Suspect]
     Active Substance: RIFAXIMIN
     Indication: PRODUCT USE IN UNAPPROVED INDICATION
  3. LACTULOSE. [Concomitant]
     Active Substance: LACTULOSE
     Indication: PRODUCT USED FOR UNKNOWN INDICATION

REACTIONS (7)
  - Death [Fatal]
  - Product use in unapproved indication [Not Recovered/Not Resolved]
  - Hepatic cancer [Unknown]
  - Balance disorder [Unknown]
  - Therapeutic response unexpected [Unknown]
  - General physical health deterioration [Unknown]
  - Asthenia [Unknown]

NARRATIVE: CASE EVENT DATE: 2016
